FAERS Safety Report 8477905-8 (Version None)
Quarter: 2012Q2

REPORT INFORMATION
  Report Type: 
  Country: None (occurrence: None)
  Receive Date: 20120629
  Receipt Date: 20120621
  Transmission Date: 20120825
  Serious: Yes (Other)
  Sender: FDA-Public Use
  Company Number: US-MYLANLABS-2012S1012617

PATIENT
  Age: 59 Year
  Sex: Female

DRUGS (1)
  1. ZOLPIDEM TARTRATE [Suspect]
     Route: 048
     Dates: start: 20120523, end: 20120602

REACTIONS (6)
  - DYSARTHRIA [None]
  - BALANCE DISORDER [None]
  - FATIGUE [None]
  - DRUG DISPENSING ERROR [None]
  - MEMORY IMPAIRMENT [None]
  - THINKING ABNORMAL [None]
